FAERS Safety Report 7476693-1 (Version None)
Quarter: 2011Q2

REPORT INFORMATION
  Report Type: 
  Country: None (occurrence: None)
  Receive Date: 20110510
  Receipt Date: 20110510
  Transmission Date: 20111010
  Serious: Yes (Other)
  Sender: FDA-Public Use
  Company Number: None

PATIENT
  Age: 14 Year
  Sex: Female
  Weight: 47.26 kg

DRUGS (8)
  1. WELLBUTRIN SR [Suspect]
     Dosage: 150 MG DAILY IN PM BY MOUTH
     Route: 048
  2. WELLBUTRIN XL [Suspect]
     Indication: MAJOR DEPRESSION
     Dosage: 300 MG DAILY IN AM BY MOUTH
     Route: 048
     Dates: start: 20100920, end: 20100925
  3. WELLBUTRIN XL [Suspect]
     Indication: DISEASE RECURRENCE
     Dosage: 300 MG DAILY IN AM BY MOUTH
     Route: 048
     Dates: start: 20100920, end: 20100925
  4. BUPROPION SR(BUPSR) [Concomitant]
  5. BUPSR [Concomitant]
  6. BUPROPION XL [Concomitant]
  7. QUETIAPINE (QUET) [Concomitant]
  8. BUPROPION XL(BUPXL) [Concomitant]

REACTIONS (3)
  - FATIGUE [None]
  - GRAND MAL CONVULSION [None]
  - MEMORY IMPAIRMENT [None]
